FAERS Safety Report 6385532-1 (Version None)
Quarter: 2009Q4

REPORT INFORMATION
  Report Type: 
  Country: None (occurrence: None)
  Receive Date: 20091002
  Receipt Date: 20080909
  Transmission Date: 20100525
  Serious: No
  Sender: FDA-Public Use
  Company Number: US-ASTRAZENECA-2008UW18755

PATIENT
  Age: 71 Year
  Sex: Female
  Weight: 65.8 kg

DRUGS (4)
  1. ARIMIDEX [Suspect]
     Indication: BREAST CANCER
     Route: 048
     Dates: start: 20061001
  2. SYNTHROID [Concomitant]
  3. PAXIL [Concomitant]
  4. PLAQUENIL [Concomitant]

REACTIONS (3)
  - ARTHRITIS [None]
  - FATIGUE [None]
  - RHEUMATOID ARTHRITIS [None]
